FAERS Safety Report 7525017-X (Version None)
Quarter: 2011Q2

REPORT INFORMATION
  Report Type: 
  Country: None (occurrence: None)
  Receive Date: 20110606
  Receipt Date: 20110526
  Transmission Date: 20111010
  Serious: Yes (Hospitalization, Other)
  Sender: FDA-Public Use
  Company Number: US-NOVOPROD-328959

PATIENT
  Sex: Female
  Weight: 93.878 kg

DRUGS (2)
  1. VICTOZA [Suspect]
     Indication: TYPE 2 DIABETES MELLITUS
     Dosage: 1.8 MG, QD
     Route: 058
     Dates: start: 20100801, end: 20110516
  2. VICTOZA [Suspect]
     Indication: WEIGHT DECREASED

REACTIONS (3)
  - UMBILICAL HERNIA GANGRENOUS [None]
  - WEIGHT DECREASED [None]
  - UMBILICAL HERNIA [None]
